FAERS Safety Report 5869610-9 (Version None)
Quarter: 2008Q3

REPORT INFORMATION
  Report Type: 
  Country: None (occurrence: None)
  Receive Date: 20080904
  Receipt Date: 20080211
  Transmission Date: 20090109
  Serious: No
  Sender: FDA-Public Use
  Company Number: US-KINGPHARMUSA00001-K200800189

PATIENT

DRUGS (4)
  1. CYTOMEL [Suspect]
     Indication: HYPOTHYROIDISM
     Dosage: 5 MCG, QD
  2. ESTRADIOL [Concomitant]
  3. SYNTHROID [Concomitant]
     Dosage: 100 MCG, QD
  4. PROVIGIL [Concomitant]
     Indication: SLEEP APNOEA SYNDROME

REACTIONS (4)
  - DRUG INEFFECTIVE [None]
  - FATIGUE [None]
  - FEELING COLD [None]
  - MYALGIA [None]
